FAERS Safety Report 14631962 (Version 1)
Quarter: 2018Q1

REPORT INFORMATION
  Report Type: Spontaneous
  Country: US (occurrence: US)
  Receive Date: 20180313
  Receipt Date: 20180313
  Transmission Date: 20180509
  Serious: No
  Sender: FDA-Public Use
  Company Number: US-AKRON, INC.-2043633

PATIENT
  Sex: Female

DRUGS (1)
  1. ZIOPTAN [Suspect]
     Active Substance: TAFLUPROST
     Indication: GLAUCOMA
     Route: 047

REACTIONS (4)
  - Eyelid bleeding [Recovering/Resolving]
  - Instillation site exfoliation [Recovering/Resolving]
  - Skin exfoliation [Recovering/Resolving]
  - Eyelid thickening [Recovering/Resolving]
